FAERS Safety Report 25353642 (Version 1)
Quarter: 2025Q2

REPORT INFORMATION
  Report Type: Spontaneous
  Country: FR (occurrence: FR)
  Receive Date: 20250523
  Receipt Date: 20250523
  Transmission Date: 20250716
  Serious: Yes (Congenital Anomaly)
  Sender: MYLAN
  Company Number: None

PATIENT
  Sex: Female

DRUGS (96)
  1. TOBI [Suspect]
     Active Substance: TOBRAMYCIN
     Indication: Pneumonia pseudomonal
     Dosage: 300 MILLIGRAM, BID (600 MILLIGRAM, QD) (300 MG 2 TIMES A DAY)
     Dates: end: 20230324
  2. TOBI [Suspect]
     Active Substance: TOBRAMYCIN
     Dosage: 300 MILLIGRAM, BID (600 MILLIGRAM, QD) (300 MG 2 TIMES A DAY)
     Dates: end: 20230324
  3. TOBI [Suspect]
     Active Substance: TOBRAMYCIN
     Dosage: 300 MILLIGRAM, BID (600 MILLIGRAM, QD) (300 MG 2 TIMES A DAY)
     Route: 064
     Dates: end: 20230324
  4. TOBI [Suspect]
     Active Substance: TOBRAMYCIN
     Dosage: 300 MILLIGRAM, BID (600 MILLIGRAM, QD) (300 MG 2 TIMES A DAY)
     Route: 064
     Dates: end: 20230324
  5. TOBI [Suspect]
     Active Substance: TOBRAMYCIN
     Dosage: 300 MILLIGRAM, BID (600 MILLIGRAM, QD) (300 MG 2 TIMES A DAY)
     Dates: end: 20230324
  6. TOBI [Suspect]
     Active Substance: TOBRAMYCIN
     Dosage: 300 MILLIGRAM, BID (600 MILLIGRAM, QD) (300 MG 2 TIMES A DAY)
     Dates: end: 20230324
  7. TOBI [Suspect]
     Active Substance: TOBRAMYCIN
     Dosage: 300 MILLIGRAM, BID (600 MILLIGRAM, QD) (300 MG 2 TIMES A DAY)
     Route: 064
     Dates: end: 20230324
  8. TOBI [Suspect]
     Active Substance: TOBRAMYCIN
     Dosage: 300 MILLIGRAM, BID (600 MILLIGRAM, QD) (300 MG 2 TIMES A DAY)
     Route: 064
     Dates: end: 20230324
  9. CREON [Suspect]
     Active Substance: PANCRELIPASE AMYLASE\PANCRELIPASE LIPASE\PANCRELIPASE PROTEASE
     Indication: Cystic fibrosis
     Dosage: QD (25000 MILLION INTERNATIONAL UNIT, QD)
     Dates: end: 20230324
  10. CREON [Suspect]
     Active Substance: PANCRELIPASE AMYLASE\PANCRELIPASE LIPASE\PANCRELIPASE PROTEASE
     Dosage: QD (25000 MILLION INTERNATIONAL UNIT, QD)
     Dates: end: 20230324
  11. CREON [Suspect]
     Active Substance: PANCRELIPASE AMYLASE\PANCRELIPASE LIPASE\PANCRELIPASE PROTEASE
     Dosage: QD (25000 MILLION INTERNATIONAL UNIT, QD)
     Route: 064
     Dates: end: 20230324
  12. CREON [Suspect]
     Active Substance: PANCRELIPASE AMYLASE\PANCRELIPASE LIPASE\PANCRELIPASE PROTEASE
     Dosage: QD (25000 MILLION INTERNATIONAL UNIT, QD)
     Route: 064
     Dates: end: 20230324
  13. CREON [Suspect]
     Active Substance: PANCRELIPASE AMYLASE\PANCRELIPASE LIPASE\PANCRELIPASE PROTEASE
     Dosage: QD (25000 MILLION INTERNATIONAL UNIT, QD)
     Dates: end: 20230324
  14. CREON [Suspect]
     Active Substance: PANCRELIPASE AMYLASE\PANCRELIPASE LIPASE\PANCRELIPASE PROTEASE
     Dosage: QD (25000 MILLION INTERNATIONAL UNIT, QD)
     Dates: end: 20230324
  15. CREON [Suspect]
     Active Substance: PANCRELIPASE AMYLASE\PANCRELIPASE LIPASE\PANCRELIPASE PROTEASE
     Dosage: QD (25000 MILLION INTERNATIONAL UNIT, QD)
     Route: 064
     Dates: end: 20230324
  16. CREON [Suspect]
     Active Substance: PANCRELIPASE AMYLASE\PANCRELIPASE LIPASE\PANCRELIPASE PROTEASE
     Dosage: QD (25000 MILLION INTERNATIONAL UNIT, QD)
     Route: 064
     Dates: end: 20230324
  17. PANTOPRAZOLE [Suspect]
     Active Substance: PANTOPRAZOLE
     Indication: Cystic fibrosis
     Dosage: 1 DOSAGE FORM, QD
     Dates: end: 20230324
  18. PANTOPRAZOLE [Suspect]
     Active Substance: PANTOPRAZOLE
     Dosage: 1 DOSAGE FORM, QD
     Dates: end: 20230324
  19. PANTOPRAZOLE [Suspect]
     Active Substance: PANTOPRAZOLE
     Dosage: 1 DOSAGE FORM, QD
     Route: 064
     Dates: end: 20230324
  20. PANTOPRAZOLE [Suspect]
     Active Substance: PANTOPRAZOLE
     Dosage: 1 DOSAGE FORM, QD
     Route: 064
     Dates: end: 20230324
  21. PANTOPRAZOLE [Suspect]
     Active Substance: PANTOPRAZOLE
     Dosage: 1 DOSAGE FORM, QD
     Dates: end: 20230324
  22. PANTOPRAZOLE [Suspect]
     Active Substance: PANTOPRAZOLE
     Dosage: 1 DOSAGE FORM, QD
     Dates: end: 20230324
  23. PANTOPRAZOLE [Suspect]
     Active Substance: PANTOPRAZOLE
     Dosage: 1 DOSAGE FORM, QD
     Route: 064
     Dates: end: 20230324
  24. PANTOPRAZOLE [Suspect]
     Active Substance: PANTOPRAZOLE
     Dosage: 1 DOSAGE FORM, QD
     Route: 064
     Dates: end: 20230324
  25. POLYETHYLENE GLYCOLS [Suspect]
     Active Substance: POLYETHYLENE GLYCOLS
     Indication: Constipation
     Dosage: 3 DOSAGE FORM, QW
     Dates: end: 20230324
  26. POLYETHYLENE GLYCOLS [Suspect]
     Active Substance: POLYETHYLENE GLYCOLS
     Dosage: 3 DOSAGE FORM, QW
     Dates: end: 20230324
  27. POLYETHYLENE GLYCOLS [Suspect]
     Active Substance: POLYETHYLENE GLYCOLS
     Dosage: 3 DOSAGE FORM, QW
     Route: 064
     Dates: end: 20230324
  28. POLYETHYLENE GLYCOLS [Suspect]
     Active Substance: POLYETHYLENE GLYCOLS
     Dosage: 3 DOSAGE FORM, QW
     Route: 064
     Dates: end: 20230324
  29. POLYETHYLENE GLYCOLS [Suspect]
     Active Substance: POLYETHYLENE GLYCOLS
     Dosage: 3 DOSAGE FORM, QW
     Dates: end: 20230324
  30. POLYETHYLENE GLYCOLS [Suspect]
     Active Substance: POLYETHYLENE GLYCOLS
     Dosage: 3 DOSAGE FORM, QW
     Dates: end: 20230324
  31. POLYETHYLENE GLYCOLS [Suspect]
     Active Substance: POLYETHYLENE GLYCOLS
     Dosage: 3 DOSAGE FORM, QW
     Route: 064
     Dates: end: 20230324
  32. POLYETHYLENE GLYCOLS [Suspect]
     Active Substance: POLYETHYLENE GLYCOLS
     Dosage: 3 DOSAGE FORM, QW
     Route: 064
     Dates: end: 20230324
  33. ELEXACAFTOR [Suspect]
     Active Substance: ELEXACAFTOR
     Indication: Cystic fibrosis
     Dates: start: 20230113, end: 20230324
  34. ELEXACAFTOR [Suspect]
     Active Substance: ELEXACAFTOR
     Dates: start: 20230113, end: 20230324
  35. ELEXACAFTOR [Suspect]
     Active Substance: ELEXACAFTOR
     Route: 064
     Dates: start: 20230113, end: 20230324
  36. ELEXACAFTOR [Suspect]
     Active Substance: ELEXACAFTOR
     Route: 064
     Dates: start: 20230113, end: 20230324
  37. ELEXACAFTOR [Suspect]
     Active Substance: ELEXACAFTOR
     Dates: start: 20230113, end: 20230324
  38. ELEXACAFTOR [Suspect]
     Active Substance: ELEXACAFTOR
     Dates: start: 20230113, end: 20230324
  39. ELEXACAFTOR [Suspect]
     Active Substance: ELEXACAFTOR
     Route: 064
     Dates: start: 20230113, end: 20230324
  40. ELEXACAFTOR [Suspect]
     Active Substance: ELEXACAFTOR
     Route: 064
     Dates: start: 20230113, end: 20230324
  41. TEZACAFTOR [Suspect]
     Active Substance: TEZACAFTOR
     Indication: Cystic fibrosis
     Dates: start: 20230113, end: 20230324
  42. TEZACAFTOR [Suspect]
     Active Substance: TEZACAFTOR
     Dates: start: 20230113, end: 20230324
  43. TEZACAFTOR [Suspect]
     Active Substance: TEZACAFTOR
     Route: 064
     Dates: start: 20230113, end: 20230324
  44. TEZACAFTOR [Suspect]
     Active Substance: TEZACAFTOR
     Route: 064
     Dates: start: 20230113, end: 20230324
  45. TEZACAFTOR [Suspect]
     Active Substance: TEZACAFTOR
     Dates: start: 20230113, end: 20230324
  46. TEZACAFTOR [Suspect]
     Active Substance: TEZACAFTOR
     Dates: start: 20230113, end: 20230324
  47. TEZACAFTOR [Suspect]
     Active Substance: TEZACAFTOR
     Route: 064
     Dates: start: 20230113, end: 20230324
  48. TEZACAFTOR [Suspect]
     Active Substance: TEZACAFTOR
     Route: 064
     Dates: start: 20230113, end: 20230324
  49. IVACAFTOR [Suspect]
     Active Substance: IVACAFTOR
     Indication: Cystic fibrosis
     Dates: start: 20230113, end: 20230324
  50. IVACAFTOR [Suspect]
     Active Substance: IVACAFTOR
     Dates: start: 20230113, end: 20230324
  51. IVACAFTOR [Suspect]
     Active Substance: IVACAFTOR
     Route: 064
     Dates: start: 20230113, end: 20230324
  52. IVACAFTOR [Suspect]
     Active Substance: IVACAFTOR
     Route: 064
     Dates: start: 20230113, end: 20230324
  53. IVACAFTOR [Suspect]
     Active Substance: IVACAFTOR
     Dates: start: 20230113, end: 20230324
  54. IVACAFTOR [Suspect]
     Active Substance: IVACAFTOR
     Dates: start: 20230113, end: 20230324
  55. IVACAFTOR [Suspect]
     Active Substance: IVACAFTOR
     Route: 064
     Dates: start: 20230113, end: 20230324
  56. IVACAFTOR [Suspect]
     Active Substance: IVACAFTOR
     Route: 064
     Dates: start: 20230113, end: 20230324
  57. COLISTIMETHATE SODIUM [Suspect]
     Active Substance: COLISTIMETHATE SODIUM
     Indication: Pneumonia pseudomonal
     Dosage: QD (4 MILLION INTERNATIONAL UNIT, QD (2 MU 2 TIMES A DAY))
     Dates: end: 20230324
  58. COLISTIMETHATE SODIUM [Suspect]
     Active Substance: COLISTIMETHATE SODIUM
     Dosage: QD (4 MILLION INTERNATIONAL UNIT, QD (2 MU 2 TIMES A DAY))
     Dates: end: 20230324
  59. COLISTIMETHATE SODIUM [Suspect]
     Active Substance: COLISTIMETHATE SODIUM
     Dosage: QD (4 MILLION INTERNATIONAL UNIT, QD (2 MU 2 TIMES A DAY))
     Route: 064
     Dates: end: 20230324
  60. COLISTIMETHATE SODIUM [Suspect]
     Active Substance: COLISTIMETHATE SODIUM
     Dosage: QD (4 MILLION INTERNATIONAL UNIT, QD (2 MU 2 TIMES A DAY))
     Route: 064
     Dates: end: 20230324
  61. COLISTIMETHATE SODIUM [Suspect]
     Active Substance: COLISTIMETHATE SODIUM
     Dosage: QD (4 MILLION INTERNATIONAL UNIT, QD (2 MU 2 TIMES A DAY))
     Dates: end: 20230324
  62. COLISTIMETHATE SODIUM [Suspect]
     Active Substance: COLISTIMETHATE SODIUM
     Dosage: QD (4 MILLION INTERNATIONAL UNIT, QD (2 MU 2 TIMES A DAY))
     Dates: end: 20230324
  63. COLISTIMETHATE SODIUM [Suspect]
     Active Substance: COLISTIMETHATE SODIUM
     Dosage: QD (4 MILLION INTERNATIONAL UNIT, QD (2 MU 2 TIMES A DAY))
     Route: 064
     Dates: end: 20230324
  64. COLISTIMETHATE SODIUM [Suspect]
     Active Substance: COLISTIMETHATE SODIUM
     Dosage: QD (4 MILLION INTERNATIONAL UNIT, QD (2 MU 2 TIMES A DAY))
     Route: 064
     Dates: end: 20230324
  65. SERETIDE [Suspect]
     Active Substance: FLUTICASONE PROPIONATE\SALMETEROL XINAFOATE
     Indication: Cystic fibrosis
     Dosage: 1000 MILLIGRAM, QD (250 MG 4 TIMES A DAY THEN 2 TIMES A DAY)
     Dates: end: 20230324
  66. SERETIDE [Suspect]
     Active Substance: FLUTICASONE PROPIONATE\SALMETEROL XINAFOATE
     Dosage: 1000 MILLIGRAM, QD (250 MG 4 TIMES A DAY THEN 2 TIMES A DAY)
     Dates: end: 20230324
  67. SERETIDE [Suspect]
     Active Substance: FLUTICASONE PROPIONATE\SALMETEROL XINAFOATE
     Dosage: 1000 MILLIGRAM, QD (250 MG 4 TIMES A DAY THEN 2 TIMES A DAY)
     Route: 064
     Dates: end: 20230324
  68. SERETIDE [Suspect]
     Active Substance: FLUTICASONE PROPIONATE\SALMETEROL XINAFOATE
     Dosage: 1000 MILLIGRAM, QD (250 MG 4 TIMES A DAY THEN 2 TIMES A DAY)
     Route: 064
     Dates: end: 20230324
  69. SERETIDE [Suspect]
     Active Substance: FLUTICASONE PROPIONATE\SALMETEROL XINAFOATE
     Dosage: 1000 MILLIGRAM, QD (250 MG 4 TIMES A DAY THEN 2 TIMES A DAY)
     Dates: end: 20230324
  70. SERETIDE [Suspect]
     Active Substance: FLUTICASONE PROPIONATE\SALMETEROL XINAFOATE
     Dosage: 1000 MILLIGRAM, QD (250 MG 4 TIMES A DAY THEN 2 TIMES A DAY)
     Dates: end: 20230324
  71. SERETIDE [Suspect]
     Active Substance: FLUTICASONE PROPIONATE\SALMETEROL XINAFOATE
     Dosage: 1000 MILLIGRAM, QD (250 MG 4 TIMES A DAY THEN 2 TIMES A DAY)
     Route: 064
     Dates: end: 20230324
  72. SERETIDE [Suspect]
     Active Substance: FLUTICASONE PROPIONATE\SALMETEROL XINAFOATE
     Dosage: 1000 MILLIGRAM, QD (250 MG 4 TIMES A DAY THEN 2 TIMES A DAY)
     Route: 064
     Dates: end: 20230324
  73. ALBUTEROL [Suspect]
     Active Substance: ALBUTEROL
     Indication: Cystic fibrosis
  74. ALBUTEROL [Suspect]
     Active Substance: ALBUTEROL
  75. ALBUTEROL [Suspect]
     Active Substance: ALBUTEROL
     Route: 064
  76. ALBUTEROL [Suspect]
     Active Substance: ALBUTEROL
     Route: 064
  77. ALBUTEROL [Suspect]
     Active Substance: ALBUTEROL
  78. ALBUTEROL [Suspect]
     Active Substance: ALBUTEROL
  79. ALBUTEROL [Suspect]
     Active Substance: ALBUTEROL
     Route: 064
  80. ALBUTEROL [Suspect]
     Active Substance: ALBUTEROL
     Route: 064
  81. LEVOTHYROXINE [Suspect]
     Active Substance: LEVOTHYROXINE
     Indication: Hypothyroidism
     Dosage: 75 MICROGRAM, QD
     Dates: end: 20230324
  82. LEVOTHYROXINE [Suspect]
     Active Substance: LEVOTHYROXINE
     Dosage: 75 MICROGRAM, QD
     Dates: end: 20230324
  83. LEVOTHYROXINE [Suspect]
     Active Substance: LEVOTHYROXINE
     Dosage: 75 MICROGRAM, QD
     Route: 064
     Dates: end: 20230324
  84. LEVOTHYROXINE [Suspect]
     Active Substance: LEVOTHYROXINE
     Dosage: 75 MICROGRAM, QD
     Route: 064
     Dates: end: 20230324
  85. LEVOTHYROXINE [Suspect]
     Active Substance: LEVOTHYROXINE
     Dosage: 75 MICROGRAM, QD
     Dates: end: 20230324
  86. LEVOTHYROXINE [Suspect]
     Active Substance: LEVOTHYROXINE
     Dosage: 75 MICROGRAM, QD
     Dates: end: 20230324
  87. LEVOTHYROXINE [Suspect]
     Active Substance: LEVOTHYROXINE
     Dosage: 75 MICROGRAM, QD
     Route: 064
     Dates: end: 20230324
  88. LEVOTHYROXINE [Suspect]
     Active Substance: LEVOTHYROXINE
     Dosage: 75 MICROGRAM, QD
     Route: 064
     Dates: end: 20230324
  89. FERROUS FUMARATE [Suspect]
     Active Substance: FERROUS FUMARATE
     Indication: Anaemia
     Dosage: 1 DOSAGE FORM, QD
     Dates: end: 20230324
  90. FERROUS FUMARATE [Suspect]
     Active Substance: FERROUS FUMARATE
     Dosage: 1 DOSAGE FORM, QD
     Dates: end: 20230324
  91. FERROUS FUMARATE [Suspect]
     Active Substance: FERROUS FUMARATE
     Dosage: 1 DOSAGE FORM, QD
     Route: 064
     Dates: end: 20230324
  92. FERROUS FUMARATE [Suspect]
     Active Substance: FERROUS FUMARATE
     Dosage: 1 DOSAGE FORM, QD
     Route: 064
     Dates: end: 20230324
  93. FERROUS FUMARATE [Suspect]
     Active Substance: FERROUS FUMARATE
     Dosage: 1 DOSAGE FORM, QD
     Dates: end: 20230324
  94. FERROUS FUMARATE [Suspect]
     Active Substance: FERROUS FUMARATE
     Dosage: 1 DOSAGE FORM, QD
     Dates: end: 20230324
  95. FERROUS FUMARATE [Suspect]
     Active Substance: FERROUS FUMARATE
     Dosage: 1 DOSAGE FORM, QD
     Route: 064
     Dates: end: 20230324
  96. FERROUS FUMARATE [Suspect]
     Active Substance: FERROUS FUMARATE
     Dosage: 1 DOSAGE FORM, QD
     Route: 064
     Dates: end: 20230324

REACTIONS (2)
  - Pelvic kidney [Recovered/Resolved with Sequelae]
  - Foetal exposure during pregnancy [Recovered/Resolved]

NARRATIVE: CASE EVENT DATE: 20230324
